FAERS Safety Report 5125145-2 (Version None)
Quarter: 2006Q4

REPORT INFORMATION
  Report Type: 
  Country: None (occurrence: None)
  Receive Date: 20061006
  Receipt Date: 20060921
  Transmission Date: 20070319
  Serious: Yes (Death, Hospitalization)
  Sender: FDA-Public Use
  Company Number: 2006001807

PATIENT
  Age: 70 Year
  Sex: Male

DRUGS (12)
  1. ERLOTINIB (TABLET)  (ERLOTINIB HCL) [Suspect]
     Indication: PANCREATIC CARCINOMA METASTATIC
     Dosage: 50 MG (QD), ORAL
     Route: 048
     Dates: start: 20051122, end: 20060815
  2. PLACEBO (PLACEBO) [Suspect]
     Indication: PANCREATIC CARCINOMA
     Dosage: (Q 2 WKS)
     Dates: start: 20051122, end: 20060815
  3. GEMCITABINE [Suspect]
     Indication: PANCREATIC CARCINOMA
     Dosage: 1400 MG (Q 2 WKS)
     Dates: start: 20051122, end: 20060815
  4. DOCUSATE (DOCUSATE) [Concomitant]
  5. METFORMIN HCL [Concomitant]
  6. ASPIRIN [Concomitant]
  7. DEXAMETHASONE TAB [Concomitant]
  8. OMEPRAZOLE [Concomitant]
  9. DILTIAZEM [Concomitant]
  10. IMIPENEM (IMIPENEM) [Concomitant]
  11. SERETIDE (SERETIDE) [Concomitant]
  12. METRONIDAZOLE [Concomitant]

REACTIONS (5)
  - BACK PAIN [None]
  - DISEASE PROGRESSION [None]
  - FALL [None]
  - HEMIPARESIS [None]
  - MUSCULAR WEAKNESS [None]
